FAERS Safety Report 10069986 (Version 1)
Quarter: 2014Q2

REPORT INFORMATION
  Report Type: Spontaneous
  Country: US (occurrence: None)
  Receive Date: 20140408
  Receipt Date: 20140408
  Transmission Date: 20141212
  Serious: Yes (Death)
  Sender: FDA-Public Use
  Company Number: 201403131

PATIENT
  Age: 45 Year
  Sex: Male

DRUGS (1)
  1. TESTIM (TESTOSTERONE) [Suspect]
     Indication: BLOOD TESTOSTERONE DECREASED
     Dates: start: 2013, end: 2014

REACTIONS (1)
  - Sudden cardiac death [None]
